FAERS Safety Report 9732826 (Version 1)
Quarter: 2013Q4

REPORT INFORMATION
  Report Type: Spontaneous
  Country: US (occurrence: US)
  Receive Date: 20131204
  Receipt Date: 20131204
  Transmission Date: 20140711
  Serious: No
  Sender: FDA-Public Use
  Company Number: US-GILEAD-2009-0021160

PATIENT
  Sex: Female
  Weight: 57.61 kg

DRUGS (32)
  1. LETAIRIS [Suspect]
     Indication: PULMONARY ARTERIAL HYPERTENSION
     Route: 048
     Dates: start: 20080214
  2. REVATIO [Concomitant]
  3. ASPIRIN [Concomitant]
  4. ARICEPT [Concomitant]
  5. NORVASC [Concomitant]
  6. LISINOPRIL [Concomitant]
  7. PREDNISONE [Concomitant]
  8. MEDROL [Concomitant]
  9. BUMEX [Concomitant]
  10. METHOTREXATE [Concomitant]
  11. ACTONEL [Concomitant]
  12. FLEXERIL [Concomitant]
  13. CELEBREX [Concomitant]
  14. PERCOCET [Concomitant]
  15. VICODIN [Concomitant]
  16. REFRESH EYE DROPS [Concomitant]
  17. SYNTHROID [Concomitant]
  18. AZATHIOPRINE [Concomitant]
  19. FISH OIL [Concomitant]
  20. AMBIEN CR [Concomitant]
  21. BENADRYL [Concomitant]
  22. IRON [Concomitant]
  23. PROTONIX [Concomitant]
  24. NASACORT AQ [Concomitant]
  25. CLONAZEPAM [Concomitant]
  26. FOLIC ACID [Concomitant]
  27. MAG CITRATE [Concomitant]
  28. MIRAPEX [Concomitant]
  29. MULTIVITAMIN [Concomitant]
  30. GLUCOSAMINE/CHOND [Concomitant]
  31. CALCIUM [Concomitant]
  32. VITAMIN C [Concomitant]

REACTIONS (1)
  - Depression [Unknown]
